FAERS Safety Report 8521682-9 (Version None)
Quarter: 2012Q3

REPORT INFORMATION
  Report Type: 
  Country: None (occurrence: None)
  Receive Date: 20120719
  Receipt Date: 20120717
  Transmission Date: 20120928
  Serious: Yes (Death, Hospitalization)
  Sender: FDA-Public Use
  Company Number: PHHY2012PK061325

PATIENT
  Age: 75 Year
  Sex: Male
  Weight: 65 kg

DRUGS (1)
  1. EXELON [Suspect]
     Dosage: 9.5 MG
     Route: 062
     Dates: start: 20110817, end: 20120620

REACTIONS (2)
  - PYREXIA [None]
  - DEATH [None]
